FAERS Safety Report 8624006 (Version 2)
Quarter: 2014Q1

REPORT INFORMATION
  Report Type: Spontaneous
  Country: US (occurrence: None)
  Receive Date: 20120323
  Receipt Date: 20130305
  Transmission Date: 20141002
  Serious: Yes (Hospitalization, Other)
  Sender: FDA-Public Use
  Company Number: 163-21880-11063597

PATIENT
  Age: 73 Year
  Sex: Male

DRUGS (22)
  1. REVLIMID [Suspect]
     Indication: PLASMA CELL MYELOMA
     Dosage: 25 MG, DAILY FOR 14D, THEN OFF FOR 7D Q21D, PO
     Route: 048
     Dates: start: 20110418, end: 201108
  2. VELCADE [Suspect]
     Indication: PLASMA CELL MYELOMA
     Dosage: 1.3 MG/M2, DAYS 1, 4, 8, 11 Q 21 DAYS, IV
     Route: 042
     Dates: start: 20110418, end: 20110718
  3. ASPIRIN [Concomitant]
  4. DEXAMETHASONE [Concomitant]
  5. CELEXA [Concomitant]
  6. DIGOXIN [Concomitant]
  7. METOPROLOL (METOPROLOL) (TABLETS) [Concomitant]
  8. SYNTHROID [Concomitant]
  9. ACETAMINOPHEN (PARACETAMOL) (TABLETS) [Concomitant]
  10. ADVAIR DISKUS (SERETIDE MITE) (INHALANT) [Concomitant]
  11. ALBUTEROL SULFATE (SALBUTAMOL SULFATE)  (INHALANT) [Concomitant]
  12. ALLOPURINOL [Concomitant]
  13. BACTRIM DS [Concomitant]
  14. BENADRYL/NYSTATIN/FLUOCINOLONE (ALL OTHER THERAPEUTIC PRODUCTS) (SOLUTION) [Concomitant]
  15. EMLA (EMLA) (CREAM) [Concomitant]
  16. IRON [Concomitant]
  17. LEVOTHYROXINE (LEVOTHYROXINE) (TABLETS) [Concomitant]
  18. MAG-OXIDE (MAGNESIUM OXIDE) (TABLETS) [Concomitant]
  19. PROCHLORPERAZINE MALEATE (PROCHLORPERAZINE MALEATE) (TABLETS) [Concomitant]
  20. SPIRIVA [Concomitant]
  21. TAMSULOSIN HCL (TAMSULOSIN HYDROCHLORIDE) (CAPSULES) [Concomitant]
  22. VICODIN [Concomitant]

REACTIONS (5)
  - Cardiac failure congestive [None]
  - Platelet count decreased [None]
  - Fatigue [None]
  - Dyspnoea [None]
  - Cardiac failure congestive [None]
